FAERS Safety Report 23523265 (Version 2)
Quarter: 2024Q1

REPORT INFORMATION
  Report Type: Spontaneous
  Country: US (occurrence: US)
  Receive Date: 20240214
  Receipt Date: 20240322
  Transmission Date: 20240410
  Serious: No
  Sender: FDA-Public Use
  Company Number: US-MYLANLABS-2024M1011257

PATIENT
  Sex: Female
  Weight: 68.03 kg

DRUGS (1)
  1. TYRVAYA [Suspect]
     Active Substance: VARENICLINE TARTRATE
     Indication: Dry eye
     Dosage: 1 DOSAGE FORM (1 SPRAY IN TO THE SIDE OF EACH NOSTRIL)
     Route: 045
     Dates: start: 20240126

REACTIONS (5)
  - Nasal discomfort [Recovered/Resolved]
  - Paranasal sinus discomfort [Recovered/Resolved]
  - Dizziness [Recovered/Resolved]
  - Rhinalgia [Recovered/Resolved]
  - Feeling abnormal [Recovered/Resolved]
